FAERS Safety Report 22676982 (Version 5)
Quarter: 2023Q4

REPORT INFORMATION
  Report Type: Report from Study
  Country: AR (occurrence: AR)
  Receive Date: 20230706
  Receipt Date: 20231005
  Transmission Date: 20240109
  Serious: Yes (Hospitalization, Other)
  Sender: FDA-Public Use
  Company Number: AR-002147023-NVSC2022AR146089

PATIENT
  Age: 56 Year
  Sex: Female

DRUGS (2)
  1. COSENTYX [Suspect]
     Active Substance: SECUKINUMAB
     Indication: Psoriasis
     Dosage: UNK
     Route: 065
     Dates: start: 20170925
  2. COSENTYX [Suspect]
     Active Substance: SECUKINUMAB
     Indication: Psoriatic arthropathy
     Dosage: 300 MG, QMO
     Route: 058
     Dates: start: 20220609

REACTIONS (17)
  - Arrhythmia [Unknown]
  - Head injury [Unknown]
  - Fall [Unknown]
  - Pruritus [Unknown]
  - Hypertension [Recovering/Resolving]
  - Hypoaesthesia oral [Unknown]
  - Menstrual disorder [Unknown]
  - Abdominal discomfort [Recovered/Resolved]
  - Neck pain [Unknown]
  - Temperature intolerance [Unknown]
  - Dyspnoea [Unknown]
  - Condition aggravated [Unknown]
  - Spinal pain [Not Recovered/Not Resolved]
  - Accident [Unknown]
  - Headache [Not Recovered/Not Resolved]
  - Psoriasis [Unknown]
  - Inappropriate schedule of product administration [Unknown]

NARRATIVE: CASE EVENT DATE: 20220609
